FAERS Safety Report 10355429 (Version 3)
Quarter: 2014Q4

REPORT INFORMATION
  Report Type: Report from Study
  Country: MY (occurrence: MY)
  Receive Date: 20140731
  Receipt Date: 20141027
  Transmission Date: 20150528
  Serious: Yes (Death)
  Sender: FDA-Public Use
  Company Number: MY-009507513-1406MYS013759

PATIENT
  Age: 67 Year
  Sex: Male
  Weight: 61 kg

DRUGS (7)
  1. METFORMIN [Concomitant]
     Active Substance: METFORMIN HYDROCHLORIDE
     Dosage: TOTAL DAILY DOSE: 2 GM
     Route: 048
     Dates: start: 20041002
  2. PERINDOPRIL [Concomitant]
     Active Substance: PERINDOPRIL
     Dosage: TOTAL DAILY DOSE: 4 MICROGRAM
     Route: 048
     Dates: start: 20041002
  3. METOPROLOL [Concomitant]
     Active Substance: METOPROLOL
     Dosage: TOTAL DAILY DOSE: 200 MICROGRAM
     Route: 048
     Dates: start: 20041002
  4. GLICLAZIDE [Concomitant]
     Active Substance: GLICLAZIDE
     Dosage: TOTAL DAILY DOSE: 320 MICROGRAM
     Route: 048
     Dates: start: 20041002
  5. ASPIRIN. [Concomitant]
     Active Substance: ASPIRIN
     Dosage: TOTAL DAILY DOSE: 150 MICROGRAM
     Route: 048
     Dates: start: 20041002
  6. EZETIMIBE AND SIMVASTATIN [Suspect]
     Active Substance: EZETIMIBE\SIMVASTATIN
     Indication: ACUTE CORONARY SYNDROME
     Dosage: UNK
     Route: 048
     Dates: start: 20061211
  7. INSULATARD (INSULIN HUMAN, ISOPHANE) [Concomitant]
     Dosage: TOTAL DAILY DOSE: 38/48 UNIT
     Route: 058
     Dates: start: 20090720

REACTIONS (1)
  - Cerebral infarction [Fatal]

NARRATIVE: CASE EVENT DATE: 20140619
